FAERS Safety Report 9011783 (Version 1)
Quarter: 2012Q4

REPORT INFORMATION
  Report Type: Spontaneous
  Country: US (occurrence: None)
  Receive Date: 20121228
  Receipt Date: 20121228
  Transmission Date: 20130627
  Serious: Yes (Hospitalization)
  Sender: FDA-Public Use
  Company Number: FK201204150

PATIENT
  Age: 64 Year
  Sex: Female
  Weight: 82 kg

DRUGS (8)
  1. CARBOPLATIN (CARBOPLATIN) [Suspect]
     Indication: OVARIAN CANCER
     Route: 042
     Dates: start: 20111209, end: 20120412
  2. DOCETAXEL [Suspect]
     Indication: OVARIAN CANCER
     Route: 042
     Dates: start: 20111209, end: 20120412
  3. MORAB-003 [Suspect]
     Indication: OVARIAN CANCER
     Route: 042
     Dates: start: 20111209
  4. PRILOSEC [Concomitant]
  5. MAGNESIUM [Concomitant]
  6. CALCIUM [Concomitant]
  7. IRON (IRON) [Concomitant]
  8. BONIVA (IBANDRONATE SODIUM) [Concomitant]

REACTIONS (8)
  - Diarrhoea [None]
  - Clostridium difficile colitis [None]
  - Dehydration [None]
  - Electrolyte imbalance [None]
  - Blood calcium decreased [None]
  - Blood magnesium decreased [None]
  - Blood potassium decreased [None]
  - Blood sodium decreased [None]
